FAERS Safety Report 19954630 (Version 1)
Quarter: 2021Q4

REPORT INFORMATION
  Report Type: Spontaneous
  Country: US (occurrence: US)
  Receive Date: 20211014
  Receipt Date: 20211014
  Transmission Date: 20220303
  Serious: Yes (Other)
  Sender: FDA-Public Use
  Company Number: None

PATIENT
  Age: 24 Year
  Sex: Female
  Weight: 66.5 kg

DRUGS (2)
  1. BD Alaris IV Pump [Concomitant]
  2. PITOCIN [Suspect]
     Active Substance: OXYTOCIN

REACTIONS (4)
  - Device malfunction [None]
  - Incorrect drug administration rate [None]
  - Uterine hyperstimulation [None]
  - Foetal heart rate deceleration abnormality [None]

NARRATIVE: CASE EVENT DATE: 20211011
